FAERS Safety Report 15890648 (Version 1)
Quarter: 2019Q1

REPORT INFORMATION
  Report Type: Spontaneous
  Country: US (occurrence: US)
  Receive Date: 20190130
  Receipt Date: 20190130
  Transmission Date: 20190417
  Serious: Yes (Death)
  Sender: FDA-Public Use
  Company Number: None

PATIENT
  Age: 73 Year
  Sex: Male

DRUGS (1)
  1. HEPARIN [Suspect]
     Active Substance: HEPARIN SODIUM

REACTIONS (5)
  - Hemiparesis [None]
  - Fall [None]
  - Lethargy [None]
  - Subdural haemorrhage [None]
  - Cerebral haemorrhage [None]

NARRATIVE: CASE EVENT DATE: 20181001
